FAERS Safety Report 6824212-2 (Version None)
Quarter: 2010Q3

REPORT INFORMATION
  Report Type: 
  Country: None (occurrence: None)
  Receive Date: 20100708
  Receipt Date: 20061009
  Transmission Date: 20110219
  Serious: No
  Sender: FDA-Public Use
  Company Number: US-PFIZER INC-2006125625

PATIENT
  Sex: Female
  Weight: 52.16 kg

DRUGS (4)
  1. CHANTIX [Suspect]
     Indication: SMOKING CESSATION THERAPY
     Dates: start: 20060927, end: 20061006
  2. LORAZEPAM [Concomitant]
  3. ADVAIR DISKUS 100/50 [Concomitant]
     Indication: ASTHMA
  4. ADVAIR DISKUS 100/50 [Concomitant]
     Indication: CHRONIC OBSTRUCTIVE PULMONARY DISEASE

REACTIONS (5)
  - AGEUSIA [None]
  - ASTHENIA [None]
  - DYSGEUSIA [None]
  - MALAISE [None]
  - WEIGHT DECREASED [None]
